FAERS Safety Report 10189328 (Version 2)
Quarter: 2014Q2

REPORT INFORMATION
  Report Type: Spontaneous
  Country: US (occurrence: US)
  Receive Date: 20140522
  Receipt Date: 20140522
  Transmission Date: 20141212
  Serious: No
  Sender: FDA-Public Use
  Company Number: US-BAXTER-2013BAX022334

PATIENT
  Age: 15 Year
  Sex: Male
  Weight: 44.95 kg

DRUGS (6)
  1. GAMMAGARD LIQUID [Suspect]
     Indication: PSORIASIS
     Route: 042
     Dates: start: 20130607, end: 20130607
  2. GAMMAGARD LIQUID [Suspect]
     Indication: MENINGITIS EOSINOPHILIC
     Route: 042
  3. GAMMAGARD LIQUID [Suspect]
     Indication: OFF LABEL USE
  4. PREDNISONE [Concomitant]
     Indication: PRODUCT USED FOR UNKNOWN INDICATION
     Route: 048
     Dates: start: 20120416
  5. FLAGYL [Concomitant]
     Indication: PRODUCT USED FOR UNKNOWN INDICATION
     Route: 048
     Dates: start: 20110328
  6. DIAZEPAM [Concomitant]
     Indication: HYPERTENSION
     Route: 048
     Dates: start: 20071212

REACTIONS (3)
  - Urticaria [Recovered/Resolved]
  - Pruritus [Recovered/Resolved]
  - Erythema [Unknown]
